FAERS Safety Report 5700085-6 (Version None)
Quarter: 2008Q2

REPORT INFORMATION
  Report Type: 
  Country: None (occurrence: None)
  Receive Date: 20080410
  Receipt Date: 20080402
  Transmission Date: 20081010
  Serious: Yes (Death)
  Sender: FDA-Public Use
  Company Number: CA-JNJFOC-20080400226

PATIENT
  Age: 18 Year
  Sex: Male

DRUGS (2)
  1. TYLENOL W/ CODEINE NO. 3 [Suspect]
     Indication: DRUG USE FOR UNKNOWN INDICATION
     Route: 048
  2. TYLENOL (CAPLET) [Suspect]
     Indication: DRUG USE FOR UNKNOWN INDICATION
     Route: 065

REACTIONS (1)
  - HEPATIC FAILURE [None]
